FAERS Safety Report 5673806-9 (Version None)
Quarter: 2008Q1

REPORT INFORMATION
  Report Type: 
  Country: None (occurrence: None)
  Receive Date: 20080319
  Receipt Date: 20080314
  Transmission Date: 20080703
  Serious: Yes (Death)
  Sender: FDA-Public Use
  Company Number: US-GENENTECH-257701

PATIENT
  Age: 81 Year
  Sex: Male
  Weight: 64.853 kg

DRUGS (2)
  1. ERLOTINIB [Suspect]
     Indication: LUNG ADENOCARCINOMA
     Dosage: 150 MG, QD
     Route: 048
     Dates: start: 20080205, end: 20080228
  2. AVASTIN [Suspect]
     Indication: LUNG ADENOCARCINOMA
     Dosage: 15 MG/KG, Q21D
     Route: 042
     Dates: start: 20080205, end: 20080226

REACTIONS (1)
  - DEATH [None]
